FAERS Safety Report 16454760 (Version 5)
Quarter: 2020Q4

REPORT INFORMATION
  Report Type: Spontaneous
  Country: JP (occurrence: JP)
  Receive Date: 20190620
  Receipt Date: 20201027
  Transmission Date: 20210113
  Serious: Yes (Hospitalization, Other)
  Sender: FDA-Public Use
  Company Number: JP-BRISTOL-MYERS SQUIBB COMPANY-BMS-2019-059235

PATIENT
  Age: 80 Year
  Sex: Male
  Weight: 54.5 kg

DRUGS (3)
  1. YERVOY [Suspect]
     Active Substance: IPILIMUMAB
     Indication: METASTATIC RENAL CELL CARCINOMA
     Dosage: 50 MILLIGRAM
     Route: 041
     Dates: start: 20190108, end: 20190319
  2. SEISHOKU [Concomitant]
     Active Substance: SODIUM CHLORIDE
     Indication: METASTATIC RENAL CELL CARCINOMA
     Dosage: 120 MILLILITER
     Route: 041
     Dates: start: 20190108, end: 20190319
  3. OPDIVO [Suspect]
     Active Substance: NIVOLUMAB
     Indication: METASTATIC RENAL CELL CARCINOMA
     Dosage: 240 MILLIGRAM
     Route: 041
     Dates: start: 20190108, end: 20190319

REACTIONS (9)
  - Malaise [Unknown]
  - Hepatic function abnormal [Recovering/Resolving]
  - Aspartate aminotransferase increased [Not Recovered/Not Resolved]
  - Tumour lysis syndrome [Unknown]
  - Adrenal insufficiency [Not Recovered/Not Resolved]
  - Pruritus [Recovered/Resolved]
  - Decreased appetite [Unknown]
  - Alanine aminotransferase increased [Not Recovered/Not Resolved]
  - Blood uric acid increased [Unknown]

NARRATIVE: CASE EVENT DATE: 2019
